FAERS Safety Report 8354839-0 (Version None)
Quarter: 2012Q2

REPORT INFORMATION
  Report Type: 
  Country: None (occurrence: None)
  Receive Date: 20120511
  Receipt Date: 20120502
  Transmission Date: 20120825
  Serious: Yes (Hospitalization)
  Sender: FDA-Public Use
  Company Number: US-ROCHE-1066947

PATIENT
  Sex: Female

DRUGS (3)
  1. PEGASYS [Suspect]
     Indication: HEPATITIS C
     Route: 058
     Dates: start: 20120224
  2. TELAPREVIR [Suspect]
     Indication: HEPATITIS C
     Dates: start: 20120224
  3. RIBASPHERE [Suspect]
     Indication: HEPATITIS C
     Route: 048

REACTIONS (4)
  - FATIGUE [None]
  - BACK PAIN [None]
  - HAEMOGLOBIN DECREASED [None]
  - BLOOD URINE PRESENT [None]
